FAERS Safety Report 16921224 (Version 2)
Quarter: 2019Q4

REPORT INFORMATION
  Report Type: Spontaneous
  Country: US (occurrence: US)
  Receive Date: 20191015
  Receipt Date: 20191121
  Transmission Date: 20200122
  Serious: No
  Sender: FDA-Public Use
  Company Number: US-SA-2019SA276302

PATIENT
  Age: 73 Year
  Sex: Female

DRUGS (1)
  1. KEVZARA [Suspect]
     Active Substance: SARILUMAB
     Indication: RHEUMATOID ARTHRITIS
     Dosage: 200 MG, QOW
     Route: 058
     Dates: start: 20190820, end: 2019

REACTIONS (5)
  - Condition aggravated [Unknown]
  - Stomatitis [Unknown]
  - Bacterial infection [Unknown]
  - Candida infection [Unknown]
  - Spinal operation [Unknown]

NARRATIVE: CASE EVENT DATE: 2019
